FAERS Safety Report 4690064-2 (Version None)
Quarter: 2005Q2

REPORT INFORMATION
  Report Type: 
  Country: None (occurrence: None)
  Receive Date: 20050614
  Receipt Date: 20050603
  Transmission Date: 20051028
  Serious: Yes (Hospitalization)
  Sender: FDA-Public Use
  Company Number: NALX20050002

PATIENT

DRUGS (1)
  1. NALOXONE [Suspect]
     Indication: OVERDOSE
     Dosage: 0.4 MG PRN IM/IV

REACTIONS (7)
  - CONFUSIONAL STATE [None]
  - FEELING ABNORMAL [None]
  - LOSS OF CONSCIOUSNESS [None]
  - MIOSIS [None]
  - OVERDOSE [None]
  - RESPIRATORY FAILURE [None]
  - TREMOR [None]
